FAERS Safety Report 23665234 (Version 2)
Quarter: 2024Q2

REPORT INFORMATION
  Report Type: Spontaneous
  Country: IT (occurrence: IT)
  Receive Date: 20240322
  Receipt Date: 20240510
  Transmission Date: 20240716
  Serious: Yes (Death)
  Sender: FDA-Public Use
  Company Number: None

PATIENT
  Age: 84 Year
  Sex: Male
  Weight: 70 kg

DRUGS (4)
  1. ALTEPLASE [Suspect]
     Active Substance: ALTEPLASE
     Indication: Cerebrovascular accident
     Dosage: ACTILYSE 50MG
     Route: 042
     Dates: start: 20240311
  2. ALTEPLASE [Suspect]
     Active Substance: ALTEPLASE
     Dosage: ACTILYSE 20MG
     Route: 042
     Dates: start: 20240311, end: 20240311
  3. EPINEPHRINE [Concomitant]
     Active Substance: EPINEPHRINE
     Indication: Bradycardia
     Route: 042
     Dates: start: 20240311, end: 20240311
  4. OSSIGENO [Concomitant]
     Indication: Product used for unknown indication

REACTIONS (7)
  - Cyanosis [Fatal]
  - Dyspnoea [Fatal]
  - Bradycardia [Fatal]
  - Haemoptysis [Fatal]
  - Cardio-respiratory arrest [Fatal]
  - Paresis [Fatal]
  - Ventricular fibrillation [Fatal]

NARRATIVE: CASE EVENT DATE: 20240311
